FAERS Safety Report 14705955 (Version 1)
Quarter: 2018Q2

REPORT INFORMATION
  Report Type: Spontaneous
  Country: SE (occurrence: SE)
  Receive Date: 20180402
  Receipt Date: 20180402
  Transmission Date: 20180711
  Serious: Yes (Hospitalization)
  Sender: FDA-Public Use
  Company Number: SE-TEVA-2018-SE-876908

PATIENT
  Age: 77 Year
  Sex: Male

DRUGS (15)
  1. AZOPT [Concomitant]
     Active Substance: BRINZOLAMIDE
     Route: 065
  2. ZOPIKLON PILUM 7,5 MG FILMDRAGERAD TABLETT [Concomitant]
     Route: 065
  3. SYMBICORT FORTE TURBUHALER 320 MIKROGRAM/9 MIKROGRAM/INHALATION INHALA [Concomitant]
     Route: 065
  4. EKLIRA GENUAIR 322 MIKROGRAM INHALATIONSPULVER [Concomitant]
     Route: 065
  5. MOLLIPECT 0,5 MG/ML + 1 MG/ML ORAL L?SNING [Concomitant]
     Route: 065
  6. NITROLINGUAL [Concomitant]
     Active Substance: NITROGLYCERIN
     Route: 065
  7. MINDIAB 5 MG TABLETT [Concomitant]
     Route: 065
  8. ACETYLCYSTEIN SANDOZ 200 MG BRUSTABLETT [Concomitant]
     Route: 065
  9. BRICANYL TURBUHALER 0,5 MG/DOS INHALATIONSPULVER [Concomitant]
     Route: 065
  10. CLOPIDOGREL ACTAVIS 75 MG FILMDRAGERAD TABLETT [Concomitant]
     Route: 065
  11. MIRTAZAPIN ACTAVIS [Concomitant]
     Active Substance: MIRTAZAPINE
     Route: 065
  12. METFORMIN ACTAVIS 500 MG FILMDRAGERAD TABLETT [Suspect]
     Active Substance: METFORMIN HYDROCHLORIDE
     Indication: TYPE 2 DIABETES MELLITUS
     Dosage: 2 GRAM DAILY;
     Route: 048
  13. LOSARTAN ACTAVIS 50 MG FILMDRAGERAD TABLETT [Concomitant]
     Route: 065
  14. ATORVASTATIN ACTAVIS 40 MG FILMDRAGERAD TABLETT [Concomitant]
     Active Substance: ATORVASTATIN
     Route: 065
  15. TROMBYL 75 MG TABLETT [Concomitant]
     Active Substance: ASPIRIN
     Route: 065

REACTIONS (1)
  - Blood lactic acid increased [Recovered/Resolved]
